FAERS Safety Report 8877633 (Version 2)
Quarter: 2013Q1

REPORT INFORMATION
  Report Type: Spontaneous
  Country: US (occurrence: US)
  Receive Date: 20121024
  Receipt Date: 20130122
  Transmission Date: 20140127
  Serious: Yes (Hospitalization)
  Sender: FDA-Public Use
  Company Number: US-SANOFI-AVENTIS-2012SA075490

PATIENT
  Age: 83 Year
  Sex: Female
  Weight: 73 kg

DRUGS (4)
  1. LASIX [Suspect]
     Route: 048
  2. ATIVAN [Suspect]
     Indication: ANXIETY
     Route: 048
     Dates: end: 20120921
  3. ZOCOR [Concomitant]
     Indication: BLOOD CHOLESTEROL INCREASED
  4. TIKOSYN [Concomitant]

REACTIONS (2)
  - Convulsion [Unknown]
  - Loss of consciousness [Unknown]
